FAERS Safety Report 10556865 (Version 2)
Quarter: 2014Q4

REPORT INFORMATION
  Report Type: Spontaneous
  Country: US (occurrence: None)
  Receive Date: 20141029
  Receipt Date: 20141105
  Transmission Date: 20150529
  Serious: Yes (Other)
  Sender: FDA-Public Use
  Company Number: 20140687

PATIENT
  Age: 52 Year
  Sex: Male

DRUGS (9)
  1. CYCLOSPORINE. [Suspect]
     Active Substance: CYCLOSPORINE
     Indication: RENAL TRANSPLANT
     Dosage: DOSE NOT PROVIDED
  2. MYCOPHENOLATE MOFETIL. [Suspect]
     Active Substance: MYCOPHENOLATE MOFETIL
     Indication: RENAL TRANSPLANT
  3. CLARITHROMYCIN. [Suspect]
     Active Substance: CLARITHROMYCIN
     Indication: MYCOBACTERIUM CHELONAE INFECTION
     Dosage: DOSE NOT REPORTED
  4. TACROLIMUS. [Suspect]
     Active Substance: TACROLIMUS
     Indication: RENAL TRANSPLANT
  5. AZITHROMYCIN [Concomitant]
     Active Substance: AZITHROMYCIN ANHYDROUS
  6. TIGECYCLINE [Concomitant]
     Active Substance: TIGECYCLINE
  7. MEROPENEM. [Concomitant]
     Active Substance: MEROPENEM
  8. PREDNISONE. [Suspect]
     Active Substance: PREDNISONE
     Indication: RENAL TRANSPLANT
  9. LINEZOLID. [Concomitant]
     Active Substance: LINEZOLID

REACTIONS (8)
  - Mycobacterium abscessus infection [None]
  - Lung squamous cell carcinoma metastatic [None]
  - Mycobacterium chelonae infection [None]
  - Blood creatinine increased [None]
  - Respiratory papilloma [None]
  - Drug interaction [None]
  - Obstructive airways disorder [None]
  - Neuropathy peripheral [None]

NARRATIVE: CASE EVENT DATE: 201006
